FAERS Safety Report 6322348-6 (Version None)
Quarter: 2009Q3

REPORT INFORMATION
  Report Type: 
  Country: None (occurrence: None)
  Receive Date: 20090824
  Receipt Date: 20090210
  Transmission Date: 20100115
  Serious: No
  Sender: FDA-Public Use
  Company Number: US-ABBOTT-09P-163-0502771-00

PATIENT
  Sex: Male
  Weight: 82.628 kg

DRUGS (10)
  1. NIASPAN [Suspect]
     Indication: BLOOD CHOLESTEROL INCREASED
     Route: 048
     Dates: start: 20090206
  2. NIASPAN [Suspect]
     Indication: LOW DENSITY LIPOPROTEIN INCREASED
     Route: 048
     Dates: start: 20090123, end: 20090205
  3. ATORVASTATIN [Concomitant]
     Indication: BLOOD CHOLESTEROL INCREASED
     Route: 048
  4. ATORVASTATIN [Concomitant]
     Indication: BLOOD TRIGLYCERIDES INCREASED
  5. ASPIRIN [Concomitant]
     Indication: PROPHYLAXIS
  6. SYNTHROID [Concomitant]
     Indication: HYPOTHYROIDISM
     Route: 048
  7. ASCORBIC ACID [Concomitant]
     Indication: PROPHYLAXIS
     Route: 048
  8. GARLIC [Concomitant]
     Indication: PROPHYLAXIS
     Route: 048
  9. FISH OIL [Concomitant]
     Indication: PROPHYLAXIS
     Route: 048
  10. VITAMIN E [Concomitant]
     Indication: PROPHYLAXIS
     Route: 048

REACTIONS (7)
  - DIARRHOEA [None]
  - ERYTHEMA [None]
  - FEELING HOT [None]
  - FLUSHING [None]
  - INSOMNIA [None]
  - PARAESTHESIA [None]
  - PRURITUS [None]
